FAERS Safety Report 10463616 (Version 4)
Quarter: 2014Q4

REPORT INFORMATION
  Report Type: Report from Study
  Country: DE (occurrence: DE)
  Receive Date: 20140919
  Receipt Date: 20141027
  Transmission Date: 20150528
  Serious: Yes (Hospitalization)
  Sender: FDA-Public Use
  Company Number: DE-ROCHE-1455717

PATIENT
  Age: 74 Year
  Sex: Female
  Weight: 44 kg

DRUGS (5)
  1. IRINOTECAN [Suspect]
     Active Substance: IRINOTECAN
     Indication: COLON CANCER
     Dosage: MOST RECENT DOSE: 18/AUG/2014 AT DOSE OF 165 MG/M2
     Route: 042
     Dates: start: 20140519, end: 20140923
  2. BEVACIZUMAB [Suspect]
     Active Substance: BEVACIZUMAB
     Indication: COLON CANCER
     Dosage: MOST RECENT DOSE: 18/AUG/2014 WAS 5 MG/KG
     Route: 042
     Dates: start: 20140519, end: 20140902
  3. CALCIUM FOLINATE [Suspect]
     Active Substance: LEUCOVORIN CALCIUM
     Indication: COLON CANCER
     Dosage: MOST RECENT DOSE: 18/AUG/2014 AT DOSE 200 MG/M2
     Route: 042
     Dates: start: 20140519, end: 20140902
  4. 5-FLUOROURACIL [Suspect]
     Active Substance: FLUOROURACIL
     Indication: COLON CANCER
     Dosage: MOST RECENT DOSE: 18/AUG/2014 AT DOSE OF 3200 MG/M2
     Route: 042
     Dates: start: 20140519, end: 20140923
  5. OXALIPLATIN. [Suspect]
     Active Substance: OXALIPLATIN
     Indication: COLON CANCER
     Dosage: MOST RECENT DOSE: 18/AUG/2014 DOSE 85 MG/M2
     Route: 042
     Dates: start: 20140519, end: 20140923

REACTIONS (2)
  - Infection [Recovered/Resolved]
  - General physical health deterioration [Recovered/Resolved]

NARRATIVE: CASE EVENT DATE: 20140825
